FAERS Safety Report 6114321-8 (Version None)
Quarter: 2009Q1

REPORT INFORMATION
  Report Type: 
  Country: None (occurrence: None)
  Receive Date: 20090312
  Receipt Date: 20090128
  Transmission Date: 20090719
  Serious: No
  Sender: FDA-Public Use
  Company Number: US-ABBOTT-09P-163-0499612-00

PATIENT
  Sex: Male
  Weight: 90.8 kg

DRUGS (8)
  1. DEPAKOTE [Suspect]
     Indication: BIPOLAR DISORDER
     Dosage: 1500MG IN AM, 500MG IN PM
     Route: 048
     Dates: start: 20050101
  2. DEPAKOTE ER [Suspect]
     Indication: BIPOLAR DISORDER
     Dosage: 3500MG IN AM, 500MG AT NOON
     Route: 048
     Dates: start: 20040101
  3. INVEGA [Concomitant]
     Indication: DRUG USE FOR UNKNOWN INDICATION
  4. SEROQUEL [Concomitant]
     Indication: AFFECTIVE DISORDER
     Route: 048
  5. LITHOBID [Concomitant]
     Indication: AFFECTIVE DISORDER
     Route: 048
  6. SYNTHROID [Concomitant]
     Indication: HYPOTHYROIDISM
     Route: 048
  7. METFORMIN HCL [Concomitant]
     Indication: DRUG USE FOR UNKNOWN INDICATION
     Route: 048
  8. SEROQUEL XR [Concomitant]
     Indication: AFFECTIVE DISORDER
     Route: 048

REACTIONS (1)
  - DRUG LEVEL DECREASED [None]
